FAERS Safety Report 25356996 (Version 1)
Quarter: 2025Q2

REPORT INFORMATION
  Report Type: Spontaneous
  Country: US (occurrence: US)
  Receive Date: 20250526
  Receipt Date: 20250526
  Transmission Date: 20250717
  Serious: No
  Sender: VANDA PHARMACEUTICALS
  Company Number: US-VANDA PHARMACEUTICALS, INC-2024ILOUS001987

PATIENT
  Age: 49 Year
  Sex: Male
  Weight: 101.13 kg

DRUGS (7)
  1. FANAPT [Suspect]
     Active Substance: ILOPERIDONE
     Indication: Affective disorder
     Dosage: 1 MILLIGRAM, BID (TITRATION PACK)
     Route: 048
  2. FANAPT [Suspect]
     Active Substance: ILOPERIDONE
     Dosage: 2 MILLIGRAM, BID (TITRATION PACK)
     Route: 048
  3. FANAPT [Suspect]
     Active Substance: ILOPERIDONE
     Dosage: 4 MILLIGRAM, BID (TITRATION PACK)
     Route: 048
  4. FANAPT [Suspect]
     Active Substance: ILOPERIDONE
     Dosage: 6 MILLIGRAM, BID (TITRATION PACK)
     Route: 048
  5. FANAPT [Suspect]
     Active Substance: ILOPERIDONE
     Route: 048
     Dates: start: 20240802, end: 20240803
  6. HYDROXYZINE [Concomitant]
     Active Substance: HYDROXYZINE HYDROCHLORIDE
     Indication: Product used for unknown indication
  7. PRAZOSIN [Concomitant]
     Active Substance: PRAZOSIN
     Indication: Product used for unknown indication
     Dosage: 1 MILLIGRAM, QHS 1 TAB
     Route: 048

REACTIONS (5)
  - Affective disorder [Unknown]
  - Off label use [Unknown]
  - Drug intolerance [Recovered/Resolved]
  - Nausea [Recovered/Resolved]
  - Vomiting [Recovered/Resolved]

NARRATIVE: CASE EVENT DATE: 20240803
